FAERS Safety Report 16071120 (Version 1)
Quarter: 2019Q1

REPORT INFORMATION
  Report Type: Spontaneous
  Country: US (occurrence: US)
  Receive Date: 20190314
  Receipt Date: 20190314
  Transmission Date: 20190418
  Serious: No
  Sender: FDA-Public Use
  Company Number: US-PFIZER INC-2019015322

PATIENT
  Age: 62 Year
  Sex: Male

DRUGS (2)
  1. LYRICA CR [Suspect]
     Active Substance: PREGABALIN
     Indication: POST LAMINECTOMY SYNDROME
     Dosage: 82.5 MG, 1X/DAY (QUANTITY: 60 TABLETS)
     Route: 048
  2. LYRICA CR [Suspect]
     Active Substance: PREGABALIN
     Dosage: 82.5 MG, DAILY
     Route: 048

REACTIONS (2)
  - Product use in unapproved indication [Unknown]
  - Tinnitus [Unknown]
